FAERS Safety Report 17835164 (Version 1)
Quarter: 2020Q2

REPORT INFORMATION
  Report Type: Spontaneous
  Country: AU (occurrence: AU)
  Receive Date: 20200528
  Receipt Date: 20200528
  Transmission Date: 20200714
  Serious: Yes (Hospitalization)
  Sender: FDA-Public Use
  Company Number: AU-ANIPHARMA-2020-AU-000069

PATIENT
  Age: 42 Year
  Sex: Female

DRUGS (1)
  1. MISOPROSTOL (NON-SPECIFIC) [Suspect]
     Active Substance: MISOPROSTOL
     Indication: ABORTION INDUCED
     Dosage: 400 MICROGRAM
     Route: 048

REACTIONS (4)
  - Brain injury [Recovered/Resolved]
  - Hepatic ischaemia [Recovered/Resolved]
  - Cardiac arrest [Recovered/Resolved]
  - Renal ischaemia [Recovered/Resolved]
